FAERS Safety Report 14623629 (Version 2)
Quarter: 2018Q2

REPORT INFORMATION
  Report Type: Report from Study
  Country: HU (occurrence: HU)
  Receive Date: 20180312
  Receipt Date: 20180629
  Transmission Date: 20180711
  Serious: Yes (Other)
  Sender: FDA-Public Use
  Company Number: HU-BAXTER-2018BAX007490

PATIENT
  Sex: Female

DRUGS (14)
  1. ZOLEDRONIC ACID [Suspect]
     Active Substance: ZOLEDRONIC ACID
     Indication: BREAST CANCER STAGE IV
     Dosage: UNK
     Route: 065
     Dates: start: 20150101
  2. AFINITOR [Suspect]
     Active Substance: EVEROLIMUS
     Indication: BREAST CANCER STAGE IV
     Dosage: 10 MG, QD
     Route: 065
     Dates: start: 20160830, end: 201609
  3. EPIRUBICIN [Suspect]
     Active Substance: EPIRUBICIN
     Indication: BREAST CANCER STAGE IV
     Dosage: UNK
     Route: 065
     Dates: start: 20030101
  4. PACLITAXEL. [Suspect]
     Active Substance: PACLITAXEL
     Indication: BREAST CANCER STAGE IV
     Dosage: UNK
     Route: 065
     Dates: end: 20151119
  5. ENDOXAN 1G POR OLDATOS INJEKCI?HOZ [Suspect]
     Active Substance: CYCLOPHOSPHAMIDE
     Indication: BREAST CANCER STAGE IV
     Dosage: UNK
     Route: 065
     Dates: start: 20030101
  6. 5-FLUOROURACIL [Suspect]
     Active Substance: FLUOROURACIL
     Indication: BREAST CANCER STAGE IV
     Dosage: UNK
     Route: 065
     Dates: start: 20030101
  7. LETROZOLE. [Suspect]
     Active Substance: LETROZOLE
     Indication: BREAST CANCER STAGE IV
     Dosage: UNK
     Route: 065
     Dates: start: 20030101, end: 20030101
  8. AFINITOR [Suspect]
     Active Substance: EVEROLIMUS
     Route: 065
     Dates: start: 20161114, end: 201708
  9. AFINITOR [Suspect]
     Active Substance: EVEROLIMUS
     Dosage: UNK
     Route: 065
     Dates: start: 20170101, end: 2017
  10. CARBOPLATIN. [Suspect]
     Active Substance: CARBOPLATIN
     Indication: BREAST CANCER STAGE IV
     Dosage: UNK
     Route: 065
     Dates: end: 20151119
  11. AFINITOR [Suspect]
     Active Substance: EVEROLIMUS
     Dosage: 10 MG, EVERY OTHER DAY
     Route: 065
     Dates: start: 20160901, end: 2016
  12. AFINITOR [Suspect]
     Active Substance: EVEROLIMUS
     Route: 065
     Dates: start: 2017, end: 20170801
  13. FASLODEX [Concomitant]
     Active Substance: FULVESTRANT
     Indication: BREAST CANCER STAGE IV
     Dosage: UNK
     Route: 065
     Dates: start: 20151101
  14. EXEMESTANE. [Concomitant]
     Active Substance: EXEMESTANE
     Indication: BREAST CANCER STAGE IV
     Dosage: UNK
     Route: 065
     Dates: start: 20160803

REACTIONS (9)
  - Alopecia [Unknown]
  - Hypokalaemia [Recovered/Resolved]
  - Metastases to liver [Not Recovered/Not Resolved]
  - Fatigue [Recovered/Resolved]
  - Metastases to bone [Not Recovered/Not Resolved]
  - Stomatitis [Recovered/Resolved]
  - Disease progression [Unknown]
  - Fatigue [Recovered/Resolved]
  - Hyperglycaemia [Unknown]

NARRATIVE: CASE EVENT DATE: 2015
